FAERS Safety Report 5044486-0 (Version None)
Quarter: 2006Q3

REPORT INFORMATION
  Report Type: 
  Country: None (occurrence: None)
  Receive Date: 20060706
  Receipt Date: 20060620
  Transmission Date: 20061208
  Serious: Yes (Hospitalization)
  Sender: FDA-Public Use
  Company Number: GB-GLAXOSMITHKLINE-B0428990A

PATIENT
  Age: 7 Year
  Sex: Female

DRUGS (3)
  1. EPIVIR [Suspect]
  2. ZIAGEN [Suspect]
  3. NEVIRAPINE [Suspect]

REACTIONS (9)
  - BLOOD CREATINE PHOSPHOKINASE INCREASED [None]
  - BLOOD LACTIC ACID INCREASED [None]
  - DRUG TOXICITY [None]
  - FATIGUE [None]
  - MITOCHONDRIAL TOXICITY [None]
  - MYALGIA [None]
  - MYOCARDITIS [None]
  - MYOSITIS [None]
  - PARAINFLUENZAE VIRUS INFECTION [None]
